FAERS Safety Report 15680181 (Version 2)
Quarter: 2019Q4

REPORT INFORMATION
  Report Type: Spontaneous
  Country: DE (occurrence: DE)
  Receive Date: 20181203
  Receipt Date: 20191021
  Transmission Date: 20200122
  Serious: Yes (Hospitalization, Other)
  Sender: FDA-Public Use
  Company Number: DE-FERRINGPH-2018FE06750

PATIENT
  Age: 68 Year
  Sex: Female

DRUGS (1)
  1. PICOPREP [Suspect]
     Active Substance: ANHYDROUS CITRIC ACID\MAGNESIUM OXIDE\SODIUM PICOSULFATE
     Indication: COMPUTERISED TOMOGRAM INTESTINE
     Dosage: TAKEN IN THE EVENING WITH 2.5 LITRES OF FLUID
     Route: 065

REACTIONS (10)
  - Head injury [Unknown]
  - Dehydration [Recovered/Resolved]
  - Oesophagitis [Unknown]
  - Syncope [Unknown]
  - Abdominal pain lower [Unknown]
  - Vomiting [Unknown]
  - Loss of consciousness [Recovered/Resolved]
  - Fall [Unknown]
  - Constipation [Not Recovered/Not Resolved]
  - Abnormal faeces [Not Recovered/Not Resolved]

NARRATIVE: CASE EVENT DATE: 201810
